FAERS Safety Report 19965090 (Version 1)
Quarter: 2021Q4

REPORT INFORMATION
  Report Type: Report from Study
  Country: US (occurrence: US)
  Receive Date: 20211018
  Receipt Date: 20211018
  Transmission Date: 20220304
  Serious: Yes (Hospitalization)
  Sender: FDA-Public Use
  Company Number: US-GLAXOSMITHKLINE-US2020GSK098654

PATIENT
  Age: 66 Year
  Sex: Female

DRUGS (6)
  1. COBOLIMAB [Suspect]
     Active Substance: COBOLIMAB
     Indication: Neoplasm
     Dosage: 300 MG
     Route: 042
     Dates: start: 20200401, end: 20200401
  2. COBOLIMAB [Suspect]
     Active Substance: COBOLIMAB
     Dosage: 300 MG
     Route: 042
     Dates: start: 20200526, end: 20200526
  3. DOSTARLIMAB [Suspect]
     Active Substance: DOSTARLIMAB
     Indication: Neoplasm
     Dosage: 500 MG
     Route: 042
     Dates: start: 20200401, end: 20200401
  4. DOSTARLIMAB [Suspect]
     Active Substance: DOSTARLIMAB
     Dosage: 500 MG
     Route: 042
     Dates: start: 20200526, end: 20200526
  5. DOCETAXEL [Suspect]
     Active Substance: DOCETAXEL
     Indication: Neoplasm
     Dosage: 75 MG/M2
     Route: 042
     Dates: start: 20200401, end: 20200401
  6. DOCETAXEL [Suspect]
     Active Substance: DOCETAXEL
     Dosage: 60 MG/M2
     Route: 042
     Dates: start: 20200526, end: 20200526

REACTIONS (1)
  - Pneumonia [Recovered/Resolved]

NARRATIVE: CASE EVENT DATE: 20200606
